FAERS Safety Report 7792324-5 (Version None)
Quarter: 2011Q4

REPORT INFORMATION
  Report Type: 
  Country: None (occurrence: None)
  Receive Date: 20111003
  Receipt Date: 20110929
  Transmission Date: 20120403
  Serious: Yes (Hospitalization)
  Sender: FDA-Public Use
  Company Number: FR-ABBOTT-11P-056-0859410-00

PATIENT
  Sex: Male

DRUGS (5)
  1. DESMODIUM [Concomitant]
     Indication: PHYTOTHERAPY
  2. PREZISTA [Suspect]
     Indication: HIV INFECTION
     Route: 048
     Dates: start: 20110513, end: 20110813
  3. TRUVADA [Suspect]
     Indication: HIV INFECTION
     Route: 048
     Dates: start: 20101201
  4. NORVIR [Suspect]
     Indication: HIV INFECTION
     Route: 048
     Dates: start: 20110513, end: 20110813
  5. REYATAZ [Suspect]
     Indication: HIV INFECTION
     Route: 048
     Dates: start: 20110813

REACTIONS (3)
  - HAEMATOMA [None]
  - FALL [None]
  - CONDITION AGGRAVATED [None]
